FAERS Safety Report 7580871-0 (Version None)
Quarter: 2011Q2

REPORT INFORMATION
  Report Type: 
  Country: None (occurrence: None)
  Receive Date: 20110629
  Receipt Date: 20110627
  Transmission Date: 20111010
  Serious: Yes (Death)
  Sender: FDA-Public Use
  Company Number: US-PFIZER INC-2011143687

PATIENT
  Sex: Male

DRUGS (1)
  1. RAPAMUNE [Suspect]
     Indication: LIVER TRANSPLANT
     Dosage: 1 MG, 1X/DAY
     Route: 048
     Dates: start: 20100408

REACTIONS (1)
  - DEATH [None]
